FAERS Safety Report 13068273 (Version 7)
Quarter: 2018Q3

REPORT INFORMATION
  Report Type: Report from Study
  Country: DE (occurrence: DE)
  Receive Date: 20161228
  Receipt Date: 20180911
  Transmission Date: 20181010
  Serious: Yes (Hospitalization)
  Sender: FDA-Public Use
  Company Number: DE-B.I. PHARMACEUTICALS,INC./RIDGEFIELD-2015-BI-48947DE

PATIENT
  Age: 78 Year
  Sex: Female
  Weight: 92 kg

DRUGS (10)
  1. DIOVAN [Concomitant]
     Active Substance: VALSARTAN
     Indication: PRODUCT USED FOR UNKNOWN INDICATION
     Route: 048
  2. GILOTRIF [Suspect]
     Active Substance: AFATINIB
     Indication: NON-SMALL CELL LUNG CANCER
     Route: 048
     Dates: start: 20150604
  3. GILOTRIF [Suspect]
     Active Substance: AFATINIB
     Route: 048
     Dates: start: 20150916
  4. HEPARIN [Concomitant]
     Active Substance: HEPARIN SODIUM
     Indication: PRODUCT USED FOR UNKNOWN INDICATION
     Route: 058
     Dates: start: 20150605, end: 20160401
  5. METOHEXAL [Concomitant]
     Active Substance: METOPROLOL SUCCINATE
     Indication: PRODUCT USED FOR UNKNOWN INDICATION
     Route: 048
  6. METOPROLOL. [Concomitant]
     Active Substance: METOPROLOL
     Indication: PRODUCT USED FOR UNKNOWN INDICATION
     Route: 048
  7. GILOTRIF [Suspect]
     Active Substance: AFATINIB
     Route: 048
     Dates: start: 20150630, end: 20150901
  8. IMODIUM [Concomitant]
     Active Substance: LOPERAMIDE HYDROCHLORIDE
     Indication: PROPHYLAXIS
     Route: 048
  9. EXCIPIAL [Concomitant]
     Indication: PROPHYLAXIS
     Dosage: LIPOCREME
     Route: 065
     Dates: start: 20150604
  10. TAVOR [Concomitant]
     Indication: ANXIETY
     Route: 048
     Dates: start: 20150512

REACTIONS (23)
  - Nausea [Recovered/Resolved]
  - Upper-airway cough syndrome [Recovered/Resolved]
  - Paronychia [Recovered/Resolved]
  - Alopecia [Recovered/Resolved]
  - Bronchospasm [Not Recovered/Not Resolved]
  - Alopecia scarring [Recovered/Resolved]
  - Diarrhoea [Recovered/Resolved]
  - Skin injury [Recovered/Resolved]
  - Arthritis infective [Recovered/Resolved]
  - Dry skin [Not Recovered/Not Resolved]
  - Cardiomegaly [Not Recovered/Not Resolved]
  - Salivary hypersecretion [Recovered/Resolved]
  - Mucosal infection [Recovered/Resolved]
  - Influenza like illness [Recovered/Resolved]
  - Dysphagia [Recovered/Resolved]
  - Neck pain [Not Recovered/Not Resolved]
  - Soft tissue infection [Recovered/Resolved]
  - Dyspnoea [Not Recovered/Not Resolved]
  - Nausea [Recovered/Resolved]
  - Oropharyngeal pain [Recovered/Resolved]
  - Muscle spasms [Not Recovered/Not Resolved]
  - Erythema [Recovered/Resolved]
  - Fatigue [Not Recovered/Not Resolved]

NARRATIVE: CASE EVENT DATE: 20150630
